FAERS Safety Report 7180068-2 (Version None)
Quarter: 2010Q4

REPORT INFORMATION
  Report Type: 
  Country: None (occurrence: None)
  Receive Date: 20101123
  Receipt Date: 20100729
  Transmission Date: 20110411
  Serious: No
  Sender: FDA-Public Use
  Company Number: 016549

PATIENT
  Sex: Female
  Weight: 89.8 kg

DRUGS (11)
  1. CIMZIA [Suspect]
     Indication: CROHN'S DISEASE
     Dosage: (400 MG 1X/28 DAYS SUBCUTANEOUS)
     Route: 058
     Dates: start: 20100215
  2. NEXIUM [Concomitant]
  3. POTASSIUM [Concomitant]
  4. LASIX [Concomitant]
  5. TAMOXIFEN [Concomitant]
  6. ALLEGRA [Concomitant]
  7. CELEXA [Concomitant]
  8. LORTAB [Concomitant]
  9. NEURONTIN [Concomitant]
  10. ZANAFLEX [Concomitant]
  11. PRAVACHOL [Concomitant]

REACTIONS (4)
  - ABDOMINAL PAIN [None]
  - DIARRHOEA [None]
  - FATIGUE [None]
  - NAUSEA [None]
